FAERS Safety Report 5504243-5 (Version None)
Quarter: 2007Q4

REPORT INFORMATION
  Report Type: 
  Country: None (occurrence: None)
  Receive Date: 20071101
  Receipt Date: 20071025
  Transmission Date: 20080405
  Serious: Yes (Hospitalization)
  Sender: FDA-Public Use
  Company Number: US-ABBOTT-07P-163-0422274-00

PATIENT
  Sex: Female
  Weight: 69.008 kg

DRUGS (4)
  1. HUMIRA [Suspect]
     Indication: RHEUMATOID ARTHRITIS
     Route: 058
     Dates: start: 20070201, end: 20070831
  2. HUMIRA [Suspect]
     Dates: start: 20071011
  3. METHOTREXATE [Concomitant]
     Indication: RHEUMATOID ARTHRITIS
     Route: 048
     Dates: start: 20070101
  4. NAPROXEN [Concomitant]
     Indication: RHEUMATOID ARTHRITIS
     Route: 048
     Dates: start: 20070831

REACTIONS (4)
  - AORTIC ANEURYSM [None]
  - GRAND MAL CONVULSION [None]
  - UPPER RESPIRATORY TRACT INFECTION [None]
  - VENOUS OCCLUSION [None]
